FAERS Safety Report 15170906 (Version 3)
Quarter: 2018Q3

REPORT INFORMATION
  Report Type: Report from Study
  Country: None (occurrence: TR)
  Receive Date: 20180720
  Receipt Date: 20180809
  Transmission Date: 20181010
  Serious: Yes (Hospitalization)
  Sender: FDA-Public Use
  Company Number: TR-ABBVIE-18S-161-2424627-00

PATIENT
  Age: 75 Year
  Sex: Male
  Weight: 60 kg

DRUGS (1)
  1. DUODOPA [Suspect]
     Active Substance: CARBIDOPA\LEVODOPA
     Indication: GENERAL PHYSICAL HEALTH DETERIORATION
     Dosage: MORNING DOSE: 4.50 ML?CONTINUOUS DOSE: 3.80 ML?EXTRA DOSE: 0.50 ML
     Route: 050
     Dates: start: 20180709, end: 20180723

REACTIONS (3)
  - Off label use [Recovered/Resolved]
  - C-reactive protein increased [Unknown]
  - Stoma site infection [Unknown]

NARRATIVE: CASE EVENT DATE: 20180709
